FAERS Safety Report 20168405 (Version 3)
Quarter: 2022Q2

REPORT INFORMATION
  Report Type: Report from Study
  Country: CO (occurrence: CO)
  Receive Date: 20211210
  Receipt Date: 20220408
  Transmission Date: 20220721
  Serious: Yes (Death, Life-Threatening, Hospitalization, Other)
  Sender: FDA-Public Use
  Company Number: CO-AMGEN-COLSL2021160949

PATIENT
  Age: 74 Year
  Sex: Male

DRUGS (2)
  1. VECTIBIX [Suspect]
     Active Substance: PANITUMUMAB
     Indication: Colorectal cancer metastatic
     Dosage: 366 MILLIGRAM, Q2WK
     Route: 042
     Dates: start: 20210908
  2. VECTIBIX [Suspect]
     Active Substance: PANITUMUMAB
     Dosage: 366 MILLIGRAM, Q3WK
     Route: 065
     Dates: start: 2021, end: 20220324

REACTIONS (5)
  - Cardiac arrest [Fatal]
  - Urinary tract infection [Recovered/Resolved]
  - Weight decreased [Not Recovered/Not Resolved]
  - Decreased appetite [Not Recovered/Not Resolved]
  - Off label use [Unknown]

NARRATIVE: CASE EVENT DATE: 20210101
